FAERS Safety Report 5121100-7 (Version None)
Quarter: 2006Q4

REPORT INFORMATION
  Report Type: 
  Country: None (occurrence: None)
  Receive Date: 20061002
  Receipt Date: 20060911
  Transmission Date: 20070319
  Serious: Yes (Other)
  Sender: FDA-Public Use
  Company Number: US200608003522

PATIENT
  Age: 78 Year
  Sex: Female

DRUGS (1)
  1. EVISTA [Suspect]
     Dosage: 60 MG, ORAL
     Route: 048

REACTIONS (1)
  - ENDOMETRIAL CANCER STAGE IV [None]
